FAERS Safety Report 7769816-8 (Version None)
Quarter: 2011Q3

REPORT INFORMATION
  Report Type: 
  Country: None (occurrence: None)
  Receive Date: 20110922
  Receipt Date: 20100726
  Transmission Date: 20111222
  Serious: Yes (Hospitalization)
  Sender: FDA-Public Use
  Company Number: US-ASTRAZENECA-2010SE34804

PATIENT
  Age: 26 Year
  Sex: Female

DRUGS (2)
  1. SEROQUEL [Suspect]
     Dosage: 4000MG
     Route: 048
  2. SEROQUEL [Suspect]
     Route: 048
     Dates: start: 20100601

REACTIONS (1)
  - OVERDOSE [None]
